FAERS Safety Report 6734590-0 (Version None)
Quarter: 2010Q2

REPORT INFORMATION
  Report Type: 
  Country: None (occurrence: None)
  Receive Date: 20100519
  Receipt Date: 20100513
  Transmission Date: 20101027
  Serious: Yes (Hospitalization)
  Sender: FDA-Public Use
  Company Number: TPA2010A02689

PATIENT
  Age: 77 Year
  Sex: Female
  Weight: 68.0396 kg

DRUGS (8)
  1. PIOGLITAZONE HYDROCHLORIDE (CODE NOT BROKEN) (PIOGLITAZONE HYDROCHLORI [Suspect]
     Indication: CEREBROVASCULAR ACCIDENT PROPHYLAXIS
     Dosage: 45 MG, 1 IN 1 D, PER ORAL
     Route: 048
     Dates: start: 20100219
  2. WARFARIN SODIUM [Concomitant]
  3. SIMVASTATIN [Concomitant]
  4. LEVOTHYROXINE SODIUM [Concomitant]
  5. PROTONIX [Concomitant]
  6. METOPROLOL (METOPROLOL) [Concomitant]
  7. CITALOPRAM HYDROBROMIDE [Concomitant]
  8. TRAMADOL HCL [Concomitant]

REACTIONS (3)
  - FALL [None]
  - HUMERUS FRACTURE [None]
  - PUBIS FRACTURE [None]
